FAERS Safety Report 14208036 (Version 1)
Quarter: 2017Q4

REPORT INFORMATION
  Report Type: Spontaneous
  Country: US (occurrence: US)
  Receive Date: 20171120
  Receipt Date: 20171120
  Transmission Date: 20180321
  Serious: Yes (Life-Threatening, Hospitalization, Disabling)
  Sender: FDA-Public Use
  Company Number: None

PATIENT
  Age: 39 Year
  Sex: Female
  Weight: 51.75 kg

DRUGS (2)
  1. ADZENYS [Concomitant]
  2. ADDERALL XR [Suspect]
     Active Substance: AMPHETAMINE ASPARTATE\AMPHETAMINE SULFATE\DEXTROAMPHETAMINE SACCHARATE\DEXTROAMPHETAMINE SULFATE
     Indication: ATTENTION DEFICIT/HYPERACTIVITY DISORDER
     Dosage: ?          QUANTITY:1 CAPSULE(S);?
     Route: 048

REACTIONS (10)
  - Abnormal behaviour [None]
  - Aggression [None]
  - Pain in extremity [None]
  - Fatigue [None]
  - Tendon disorder [None]
  - Hunger [None]
  - Insurance issue [None]
  - Disturbance in attention [None]
  - Withdrawal syndrome [None]
  - Feeling abnormal [None]

NARRATIVE: CASE EVENT DATE: 20170329
